FAERS Safety Report 21546454 (Version 2)
Quarter: 2022Q4

REPORT INFORMATION
  Report Type: Spontaneous
  Country: US (occurrence: US)
  Receive Date: 20221103
  Receipt Date: 20221205
  Transmission Date: 20230112
  Serious: No
  Sender: FDA-Public Use
  Company Number: US-SA-SAC20221102000901

PATIENT
  Age: 48 Year
  Sex: Female

DRUGS (4)
  1. DUPIXENT [Suspect]
     Active Substance: DUPILUMAB
     Indication: Asthma
     Dosage: 300 MG, QOW
     Route: 058
     Dates: start: 20220214, end: 202210
  2. FASENRA [Concomitant]
     Active Substance: BENRALIZUMAB
     Dosage: 30MG (1 ML)
     Route: 058
  3. XOLAIR [Concomitant]
     Active Substance: OMALIZUMAB
     Dosage: TWO 150MG
     Route: 058
  4. XOLAIR [Concomitant]
     Active Substance: OMALIZUMAB
     Dosage: ONE 75MG PFS
     Route: 058

REACTIONS (1)
  - Drug ineffective [Unknown]
